FAERS Safety Report 9177414 (Version 2)
Quarter: 2013Q1

REPORT INFORMATION
  Report Type: Spontaneous
  Country: FR (occurrence: FR)
  Receive Date: 20130321
  Receipt Date: 20130325
  Transmission Date: 20140127
  Serious: Yes (Other)
  Sender: FDA-Public Use
  Company Number: FR-ASTELLAS-2013EU002525

PATIENT
  Sex: Female

DRUGS (1)
  1. PROTOPIC [Suspect]
     Indication: VITILIGO
     Dosage: UNK
     Route: 061

REACTIONS (2)
  - Off label use [Unknown]
  - Hyperthyroidism [Not Recovered/Not Resolved]
